FAERS Safety Report 6194239-5 (Version None)
Quarter: 2009Q2

REPORT INFORMATION
  Report Type: 
  Country: None (occurrence: None)
  Receive Date: 20090506
  Receipt Date: 20090421
  Transmission Date: 20091009
  Serious: Yes (Life-Threatening, Hospitalization)
  Sender: FDA-Public Use
  Company Number: THYM-1000984

PATIENT
  Age: 20 Year
  Sex: Female
  Weight: 85.7 kg

DRUGS (7)
  1. THYMOGLOBULIN [Suspect]
     Indication: APLASTIC ANAEMIA
     Dosage: 215 MG, QD, INTRAVENOUS
     Route: 042
     Dates: start: 20090128, end: 20090201
  2. CYCLOSPORINE [Concomitant]
  3. FLUCONAZOLE [Concomitant]
  4. NORETHISTERONE (NORETHISTERONE) [Concomitant]
  5. NEOMYCIN (NEOMYCIN) [Concomitant]
  6. ACYCLOVIR [Concomitant]
  7. LANSOPRAZOLE [Concomitant]

REACTIONS (17)
  - ACIDOSIS [None]
  - CONDITION AGGRAVATED [None]
  - CONFUSIONAL STATE [None]
  - FALL [None]
  - FEBRILE NEUTROPENIA [None]
  - HYPOTENSION [None]
  - ISCHAEMIC HEPATITIS [None]
  - JOINT SWELLING [None]
  - LEFT VENTRICULAR DYSFUNCTION [None]
  - MOVEMENT DISORDER [None]
  - MYOPATHY [None]
  - NEUTROPENIC SEPSIS [None]
  - PNEUMONIA KLEBSIELLA [None]
  - PULMONARY HYPERTENSION [None]
  - PUPIL FIXED [None]
  - RENAL FAILURE ACUTE [None]
  - SERUM SICKNESS [None]
